FAERS Safety Report 6664304-4 (Version None)
Quarter: 2010Q2

REPORT INFORMATION
  Report Type: 
  Country: None (occurrence: None)
  Receive Date: 20100401
  Receipt Date: 20100323
  Transmission Date: 20101027
  Serious: Yes (Hospitalization)
  Sender: FDA-Public Use
  Company Number: GB-ELI_LILLY_AND_COMPANY-GB201003006685

PATIENT
  Sex: Female

DRUGS (4)
  1. CYMBALTA [Suspect]
     Dosage: 60 MG, UNKNOWN
     Route: 065
  2. PROPRANOLOL [Concomitant]
     Dosage: UNK, UNKNOWN
     Route: 065
  3. DIAZEPAM [Concomitant]
     Dosage: UNK, UNKNOWN
     Route: 065
  4. OLANZAPINE [Concomitant]
     Dosage: UNK, UNKNOWN
     Route: 065

REACTIONS (2)
  - DYSPHAGIA [None]
  - HOSPITALISATION [None]
